FAERS Safety Report 4890106-5 (Version None)
Quarter: 2005Q4

REPORT INFORMATION
  Report Type: 
  Country: None (occurrence: None)
  Receive Date: 20051215
  Receipt Date: 20041207
  Transmission Date: 20060501
  Serious: Yes (Other)
  Sender: FDA-Public Use
  Company Number: 2004097479

PATIENT
  Age: 77 Year
  Sex: Female
  Weight: 82.1011 kg

DRUGS (7)
  1. BEXTRA [Suspect]
     Indication: ILL-DEFINED DISORDER
     Dates: start: 20031201, end: 20041001
  2. ALEVE [Suspect]
     Indication: ARTHRITIS
     Dosage: SEE IMAGE
     Route: 048
     Dates: end: 20041023
  3. ADVIL [Suspect]
     Indication: ILL-DEFINED DISORDER
     Dates: end: 20041026
  4. BUSPAR [Concomitant]
  5. ADVAIR DISKUS 100/50 [Concomitant]
  6. SYNTHROID [Concomitant]
  7. CLARINEX [Concomitant]

REACTIONS (1)
  - HAEMATOCHEZIA [None]
